FAERS Safety Report 18681274 (Version 1)
Quarter: 2020Q4

REPORT INFORMATION
  Report Type: Spontaneous
  Country: US (occurrence: US)
  Receive Date: 20201229
  Receipt Date: 20201229
  Transmission Date: 20210114
  Serious: Yes (Hospitalization)
  Sender: FDA-Public Use
  Company Number: None

PATIENT
  Age: 70 Year
  Sex: Female
  Weight: 57 kg

DRUGS (5)
  1. ALPRAZOLAM 0.5 MG PRN [Concomitant]
  2. FLUTICASONE 1 SPRAY EACH NOSTIL BID [Concomitant]
  3. BAMLANIVIMAB. [Suspect]
     Active Substance: BAMLANIVIMAB
     Indication: COVID-19
     Dosage: ?          OTHER FREQUENCY:ONCE;?
     Route: 041
     Dates: start: 20201228
  4. VALTREX 1000 MG TID [Concomitant]
  5. ESTRADIOL 0.025 MG/24 HR PATCH [Concomitant]

REACTIONS (4)
  - Pyrexia [None]
  - Muscle twitching [None]
  - Chills [None]
  - Dizziness [None]

NARRATIVE: CASE EVENT DATE: 20201228
